FAERS Safety Report 24544484 (Version 1)
Quarter: 2024Q4

REPORT INFORMATION
  Report Type: Report from Study
  Country: IN (occurrence: IN)
  Receive Date: 20241024
  Receipt Date: 20241024
  Transmission Date: 20250114
  Serious: Yes (Other)
  Sender: CIPLA
  Company Number: IN-CIPLA LTD.-2024IN11760

PATIENT

DRUGS (8)
  1. SPIRONOLACTONE\TORSEMIDE [Suspect]
     Active Substance: SPIRONOLACTONE\TORSEMIDE
     Indication: Product used for unknown indication
     Dosage: DOSE USED-1, FREQUENCY-1 (UNSPECIFIED UNITS), STRENGTH:10/25MG
     Route: 048
  2. METOPROLOL SUCCINATE [Suspect]
     Active Substance: METOPROLOL SUCCINATE
     Indication: Product used for unknown indication
     Dosage: DOSE USED-1(UNITS UNSPECIFIED), FREQUENCY- 2(UNITS UNSPECIFIED)
     Route: 048
  3. ASPIRIN\ATORVASTATIN [Concomitant]
     Active Substance: ASPIRIN\ATORVASTATIN
     Indication: Product used for unknown indication
     Dosage: UNK
     Route: 065
  4. RAMIPRIL [Concomitant]
     Active Substance: RAMIPRIL
     Indication: Product used for unknown indication
     Dosage: UNK
     Route: 065
  5. PAN [Concomitant]
     Indication: Product used for unknown indication
     Dosage: UNK ( STRENGTH- 40 (UNSPECIFIED UNITS))
     Route: 065
  6. DAPAVEL [Concomitant]
     Indication: Product used for unknown indication
     Dosage: UNK
     Route: 065
  7. NIKORAN [Concomitant]
     Indication: Product used for unknown indication
     Dosage: UNK
     Route: 065
  8. ZAVAMET [Concomitant]
     Indication: Product used for unknown indication
     Dosage: UNK
     Route: 065

REACTIONS (3)
  - Coronary artery disease [Unknown]
  - Dyspnoea [Not Recovered/Not Resolved]
  - Pyrexia [Not Recovered/Not Resolved]

NARRATIVE: CASE EVENT DATE: 20240601
